FAERS Safety Report 13705836 (Version 1)
Quarter: 2017Q2

REPORT INFORMATION
  Report Type: Report from Study
  Country: None (occurrence: US)
  Receive Date: 20170630
  Receipt Date: 20170630
  Transmission Date: 20170830
  Serious: Yes (Hospitalization)
  Sender: FDA-Public Use
  Company Number: US-IPSEN BIOPHARMACEUTICALS, INC.-2014-6898

PATIENT
  Sex: Female

DRUGS (3)
  1. IMODIUM [Concomitant]
     Active Substance: LOPERAMIDE HYDROCHLORIDE
     Indication: PRODUCT USED FOR UNKNOWN INDICATION
     Dosage: NOT REPORTED
     Route: 065
  2. SOMATULINE DEPOT [Suspect]
     Active Substance: LANREOTIDE ACETATE
     Indication: ACROMEGALY
     Dosage: 60MG
     Route: 058
     Dates: start: 20120515
  3. REMICADE [Concomitant]
     Active Substance: INFLIXIMAB
     Indication: PRODUCT USED FOR UNKNOWN INDICATION
     Dosage: NOT REPORTED
     Route: 042

REACTIONS (6)
  - Back pain [Recovering/Resolving]
  - Pleural effusion [Recovering/Resolving]
  - Inappropriate schedule of drug administration [Unknown]
  - Dyspnoea [Not Recovered/Not Resolved]
  - Fatigue [Not Recovered/Not Resolved]
  - Myocardial infarction [Unknown]

NARRATIVE: CASE EVENT DATE: 2014
